FAERS Safety Report 7530162-9 (Version None)
Quarter: 2011Q2

REPORT INFORMATION
  Report Type: 
  Country: None (occurrence: None)
  Receive Date: 20110606
  Receipt Date: 20110606
  Transmission Date: 20111010
  Serious: Yes (Life-Threatening)
  Sender: FDA-Public Use
  Company Number: None

PATIENT
  Age: 59 Year
  Sex: Female
  Weight: 71.2147 kg

DRUGS (3)
  1. CARISOPRODOL [Concomitant]
  2. NEURONTIN [Suspect]
     Indication: BIPOLAR DISORDER
     Dosage: 100MG THREE X D ORAL
     Route: 048
  3. BENADRYL [Concomitant]

REACTIONS (1)
  - SEROTONIN SYNDROME [None]
